FAERS Safety Report 9193510 (Version 2)
Quarter: 2013Q2

REPORT INFORMATION
  Report Type: Spontaneous
  Country: JP (occurrence: JP)
  Receive Date: 20130327
  Receipt Date: 20130429
  Transmission Date: 20140414
  Serious: Yes (Other)
  Sender: FDA-Public Use
  Company Number: JP-PFIZER INC-2013099358

PATIENT
  Age: 55 Year
  Sex: Female

DRUGS (3)
  1. CELECOX [Suspect]
     Indication: OSTEOARTHRITIS
     Dosage: 100 MG, 2X/DAY
     Route: 048
     Dates: start: 20130314, end: 20130314
  2. NABOAL [Concomitant]
     Dosage: UNK
     Dates: start: 20130314
  3. OHNES ST [Concomitant]
     Dosage: UNK
     Dates: start: 20130314, end: 20130314

REACTIONS (1)
  - Urinary retention [Recovered/Resolved]
